FAERS Safety Report 20203160 (Version 4)
Quarter: 2023Q4

REPORT INFORMATION
  Report Type: Report from Study
  Country: CR (occurrence: CR)
  Receive Date: 20211218
  Receipt Date: 20231219
  Transmission Date: 20240109
  Serious: Yes (Other)
  Sender: FDA-Public Use
  Company Number: CR-NOVARTISPH-NVSC2021CR282713

PATIENT
  Sex: Female

DRUGS (2)
  1. SECUKINUMAB [Suspect]
     Active Substance: SECUKINUMAB
     Indication: Ankylosing spondylitis
     Dosage: 150 MG, UNKNOWN
     Route: 065
  2. SECUKINUMAB [Suspect]
     Active Substance: SECUKINUMAB
     Dosage: 150 MG, QMO (BENEATH THE SKIN USUALLY VIA INJECTION)
     Route: 058
     Dates: start: 20210817

REACTIONS (11)
  - Pneumonia [Recovering/Resolving]
  - Immunodeficiency [Unknown]
  - Ear infection [Recovering/Resolving]
  - Urinary tract infection [Recovering/Resolving]
  - COVID-19 [Unknown]
  - Infection [Recovered/Resolved]
  - Influenza [Unknown]
  - Headache [Unknown]
  - Nasopharyngitis [Unknown]
  - Cough [Unknown]
  - Pain [Unknown]
